FAERS Safety Report 8531838-7 (Version None)
Quarter: 2012Q3

REPORT INFORMATION
  Report Type: 
  Country: None (occurrence: None)
  Receive Date: 20120723
  Receipt Date: 20120720
  Transmission Date: 20120928
  Serious: No
  Sender: FDA-Public Use
  Company Number: US-PFIZER INC-2012150073

PATIENT
  Sex: Female
  Weight: 104 kg

DRUGS (9)
  1. FUROSEMIDE [Concomitant]
     Dosage: 20 MG, 1X/DAY
  2. LISINOPRIL [Concomitant]
     Dosage: 10 MG, 1X/DAY
  3. SIMVASTATIN [Concomitant]
     Dosage: 40 MG, 1X/DAY
  4. LEVOXYL [Concomitant]
     Dosage: 200 UG, 1X/DAY
  5. LYRICA [Suspect]
     Indication: FIBROMYALGIA
     Dosage: 300 MG, 2X/DAY
     Route: 048
  6. LYRICA [Suspect]
     Dosage: 300 MG, 1X/DAY
  7. GLYBURIDE [Concomitant]
     Dosage: 5 MG, 2X/DAY
  8. OMEPRAZOLE [Concomitant]
     Dosage: 20 MG, UNK
  9. BUPROPION [Concomitant]
     Dosage: 75 MG, 2X/DAY
     Route: 048

REACTIONS (1)
  - FEELING ABNORMAL [None]
